FAERS Safety Report 6261356-0 (Version None)
Quarter: 2009Q3

REPORT INFORMATION
  Report Type: 
  Country: None (occurrence: None)
  Receive Date: 20090709
  Receipt Date: 20090626
  Transmission Date: 20100115
  Serious: Yes (Other)
  Sender: FDA-Public Use
  Company Number: SG-PFIZER INC-2009234190

PATIENT
  Age: 55 Year

DRUGS (1)
  1. GLIPIZIDE [Suspect]

REACTIONS (2)
  - DYSPNOEA [None]
  - VOMITING [None]
